FAERS Safety Report 9543807 (Version 3)
Quarter: 2013Q4

REPORT INFORMATION
  Report Type: Report from Study
  Country: BR (occurrence: BR)
  Receive Date: 20130923
  Receipt Date: 20131104
  Transmission Date: 20140711
  Serious: Yes (Other)
  Sender: FDA-Public Use
  Company Number: PHHY2013BR105523

PATIENT
  Sex: Male
  Weight: 96 kg

DRUGS (3)
  1. EXELON PATCH [Suspect]
     Indication: DEMENTIA
     Dosage: 4.6 MG (PATCH 5 CM2), EACH 24 HOURS
     Route: 062
  2. EXELON PATCH [Suspect]
     Indication: PARKINSON^S DISEASE
     Dosage: 9.5 MG (PATCH 10 CM2), EACH 24 HOURS
     Route: 062
     Dates: start: 201305
  3. EXELON PATCH [Suspect]
     Indication: HALLUCINATION
     Dosage: 9.5 MG (PATCH 10 CM2), EACH 24 HOURS
     Route: 062
     Dates: start: 201308

REACTIONS (5)
  - Dementia [Not Recovered/Not Resolved]
  - Hallucination [Not Recovered/Not Resolved]
  - Gait disturbance [Not Recovered/Not Resolved]
  - Cognitive disorder [Unknown]
  - Daydreaming [Unknown]
